FAERS Safety Report 21714297 (Version 1)
Quarter: 2022Q4

REPORT INFORMATION
  Report Type: Spontaneous
  Country: US (occurrence: None)
  Receive Date: 20221209
  Receipt Date: 20221209
  Transmission Date: 20230113
  Serious: No
  Sender: FDA-Public Use
  Company Number: None

PATIENT
  Age: 77 Year
  Sex: Male

DRUGS (1)
  1. APIXABAN [Suspect]
     Active Substance: APIXABAN
     Dates: start: 20221031

REACTIONS (2)
  - Fall [None]
  - Subarachnoid haemorrhage [None]

NARRATIVE: CASE EVENT DATE: 20221031
